FAERS Safety Report 14782442 (Version 1)
Quarter: 2018Q2

REPORT INFORMATION
  Report Type: Spontaneous
  Country: None (occurrence: FR)
  Receive Date: 20180420
  Receipt Date: 20180420
  Transmission Date: 20180711
  Serious: Yes (Other)
  Sender: FDA-Public Use
  Company Number: FR-MERCK KGAA-2046125

PATIENT
  Age: 57 Year
  Sex: Female

DRUGS (1)
  1. NOVOTHYROX [Suspect]
     Active Substance: LEVOTHYROXINE SODIUM
     Indication: POST PROCEDURAL HYPOTHYROIDISM

REACTIONS (10)
  - Hypothyroidism [None]
  - Dizziness [None]
  - Headache [None]
  - Loss of personal independence in daily activities [None]
  - Blood thyroid stimulating hormone abnormal [None]
  - Disturbance in attention [None]
  - Affect lability [None]
  - Marital problem [None]
  - Hyperthyroidism [None]
  - Asthenia [None]
